FAERS Safety Report 7210386-0 (Version None)
Quarter: 2011Q1

REPORT INFORMATION
  Report Type: 
  Country: None (occurrence: None)
  Receive Date: 20110105
  Receipt Date: 20101224
  Transmission Date: 20110831
  Serious: Yes (Hospitalization)
  Sender: FDA-Public Use
  Company Number: PHFR2010GB04653

PATIENT
  Sex: Male

DRUGS (4)
  1. CLOZARIL [Suspect]
     Dosage: 100 MG OM + 150 MG EVENING
     Route: 048
  2. MIRTAZAPINE [Concomitant]
  3. VENLAFAXINE [Concomitant]
  4. CLOZARIL [Suspect]
     Indication: SCHIZOPHRENIA
     Route: 048
     Dates: start: 20030113, end: 20101013

REACTIONS (5)
  - CARDIAC PACEMAKER INSERTION [None]
  - GASTROINTESTINAL DISORDER [None]
  - DEPRESSED LEVEL OF CONSCIOUSNESS [None]
  - ATRIOVENTRICULAR BLOCK [None]
  - TREATMENT NONCOMPLIANCE [None]
